FAERS Safety Report 25352714 (Version 4)
Quarter: 2025Q3

REPORT INFORMATION
  Report Type: Report from Study
  Country: CN (occurrence: CN)
  Receive Date: 20250523
  Receipt Date: 20250818
  Transmission Date: 20251020
  Serious: Yes (Hospitalization)
  Sender: DR REDDYS
  Company Number: CN-RDY-CHN/2025/05/007173

PATIENT
  Age: 10 Month
  Sex: Female
  Weight: 10 kg

DRUGS (20)
  1. VIGABATRIN [Suspect]
     Active Substance: VIGABATRIN
     Indication: Infantile spasms
     Dosage: 4 ML IN THE MORNING AND EVENING (50MG/KG/D), VISIBLE SPASMS
     Route: 048
     Dates: start: 20241217, end: 20241222
  2. VIGABATRIN [Suspect]
     Active Substance: VIGABATRIN
     Dosage: 6 ML IN THE MORNING AND EVENING (75MG/KG/D), VISIBLE SPASMS
     Route: 048
     Dates: start: 20241223, end: 20241229
  3. VIGABATRIN [Suspect]
     Active Substance: VIGABATRIN
     Dosage: 8 ML IN THE MORNING AND EVENING (88.89 MG/KG/D)
     Route: 048
     Dates: start: 20241230, end: 20250113
  4. VIGABATRIN [Suspect]
     Active Substance: VIGABATRIN
     Dosage: 8 ML IN THE MORNING AND EVENING (80MG/KG/D)
     Route: 048
     Dates: start: 20250209, end: 20250307
  5. VIGABATRIN [Suspect]
     Active Substance: VIGABATRIN
     Dosage: 8 ML IN THE MORNING AND EVENING (88.89 MG/KG/D)
     Route: 048
     Dates: start: 20250113, end: 20250208
  6. VIGABATRIN [Suspect]
     Active Substance: VIGABATRIN
     Dosage: 8 ML IN THE MORNING AND EVENING (84.21MG/KG/D)
     Route: 048
     Dates: start: 20250308, end: 20250528
  7. HAEMOPHILUS INFLUENZAE TYPE B [Concomitant]
     Active Substance: HAEMOPHILUS INFLUENZAE TYPE B
     Indication: Prophylaxis
     Route: 065
     Dates: start: 20241227, end: 20241227
  8. 13-valent Pneumococcal Vaccine [Concomitant]
     Indication: Prophylaxis
     Route: 065
     Dates: start: 20250111, end: 20250111
  9. VITAMIN AD [Concomitant]
     Active Substance: PETROLATUM
     Indication: Prophylaxis
     Route: 048
     Dates: start: 20241223, end: 20241223
  10. VITAMIN AD [Concomitant]
     Active Substance: PETROLATUM
     Route: 048
     Dates: start: 20241226, end: 20241226
  11. VITAMIN AD [Concomitant]
     Active Substance: PETROLATUM
     Route: 048
     Dates: start: 20241230, end: 20241230
  12. POLIOMYELITIS VACCINE NOS [Concomitant]
     Active Substance: POLIOMYELITIS VACCINE
     Indication: Prophylaxis
     Route: 065
     Dates: start: 20250205, end: 20250205
  13. Group A meningococcal polysaccharide vaccine [Concomitant]
     Indication: Prophylaxis
     Route: 065
     Dates: start: 20250215, end: 20250215
  14. Measles-Mumps- Rubella vaccine [Concomitant]
     Indication: Prophylaxis
     Route: 065
     Dates: start: 20250301, end: 20250301
  15. MUPIROCIN [Concomitant]
     Active Substance: MUPIROCIN
     Indication: Herpes virus infection
     Route: 061
     Dates: start: 20241212, end: 20241216
  16. VITAMIN B6 [Concomitant]
     Active Substance: PYRIDOXINE HYDROCHLORIDE
     Indication: Infantile spasms
     Route: 042
     Dates: start: 20241211, end: 20241216
  17. BUDESONIDE [Concomitant]
     Active Substance: BUDESONIDE
     Indication: Cough
     Route: 055
     Dates: start: 20241215, end: 20241216
  18. Peramivir Sodium Chloride Injection [Concomitant]
     Indication: Influenza
     Route: 042
     Dates: start: 20250129, end: 20250130
  19. CEFUROXIME SODIUM [Concomitant]
     Active Substance: CEFUROXIME SODIUM
     Indication: Influenza
     Route: 042
     Dates: start: 20250129, end: 20250201
  20. ASCORBIC ACID [Concomitant]
     Active Substance: ASCORBIC ACID
     Indication: Influenza
     Route: 042
     Dates: start: 20250130, end: 20250201

REACTIONS (3)
  - Rhinovirus infection [Recovered/Resolved]
  - Bronchitis [Recovered/Resolved]
  - Sepsis [Recovered/Resolved]

NARRATIVE: CASE EVENT DATE: 20250502
